FAERS Safety Report 4709324-1 (Version None)
Quarter: 2005Q3

REPORT INFORMATION
  Report Type: 
  Country: None (occurrence: None)
  Receive Date: 20050708
  Receipt Date: 20050627
  Transmission Date: 20060218
  Serious: Yes (Other)
  Sender: FDA-Public Use
  Company Number: US-JNJFOC-20050607588

PATIENT
  Sex: Female
  Weight: 104.33 kg

DRUGS (18)
  1. REMICADE [Suspect]
     Indication: RHEUMATOID ARTHRITIS
  2. TYLENOL [Concomitant]
     Indication: HEADACHE
  3. ULTRAM [Concomitant]
     Indication: HEADACHE
  4. NIFEDIPINE [Concomitant]
     Indication: BLOOD PRESSURE
  5. MICARDIS [Concomitant]
     Indication: BLOOD PRESSURE
  6. ACIPHEX [Concomitant]
     Indication: GASTROINTESTINAL DISORDER
  7. LESCOL [Concomitant]
  8. ZETIA [Concomitant]
  9. METHOTREXATE [Concomitant]
     Indication: RHEUMATOID ARTHRITIS
  10. NEURONTIN [Concomitant]
     Indication: RHEUMATOID ARTHRITIS
  11. FOLIC ACID [Concomitant]
     Indication: RHEUMATOID ARTHRITIS
  12. KLOR-CON [Concomitant]
  13. TRAZODONE [Concomitant]
     Indication: DEPRESSION
  14. LORAZEPAM [Concomitant]
     Indication: DEPRESSION
  15. LEXPRO [Concomitant]
     Indication: ANXIETY
  16. LUMIGAN [Concomitant]
     Dosage: 0.03
  17. RESTASIS [Concomitant]
     Indication: GLAUCOMA
     Dosage: 0.05
  18. HYDROCHLOROT [Concomitant]
     Indication: BLOOD PRESSURE

REACTIONS (1)
  - ANKYLOSING SPONDYLITIS [None]
